FAERS Safety Report 9501953 (Version 2)
Quarter: 2013Q3

REPORT INFORMATION
  Report Type: Spontaneous
  Country: FR (occurrence: FR)
  Receive Date: 20130905
  Receipt Date: 20130905
  Transmission Date: 20140515
  Serious: Yes (Hospitalization)
  Sender: FDA-Public Use
  Company Number: FR-ASTRAZENECA-2013SE38142

PATIENT
  Age: 3658 Week
  Sex: Female

DRUGS (13)
  1. INEXIUM [Suspect]
     Route: 048
     Dates: end: 20130324
  2. CYMBALTA [Suspect]
     Route: 048
     Dates: end: 20130324
  3. LASILIX [Suspect]
     Route: 048
     Dates: end: 20130324
  4. LASILIX [Suspect]
     Dosage: 60 MG SR EVERYDAY
     Route: 048
  5. LASILIX [Suspect]
     Route: 048
  6. HEMIGOXINE NATIVELLE [Concomitant]
  7. DAFALGAN [Concomitant]
  8. DIFFU K [Concomitant]
  9. KARDEGIC [Concomitant]
  10. METEOSPASMYL [Concomitant]
  11. SERETIDE [Concomitant]
  12. BRONCHODUAL [Concomitant]
  13. BRICANYL [Concomitant]

REACTIONS (3)
  - Bronchitis [Unknown]
  - Hyponatraemia [Recovered/Resolved]
  - Bronchospasm [Unknown]
